FAERS Safety Report 9857947 (Version 1)
Quarter: 2014Q1

REPORT INFORMATION
  Report Type: Spontaneous
  Country: US (occurrence: US)
  Receive Date: 20140131
  Receipt Date: 20140131
  Transmission Date: 20141002
  Serious: No
  Sender: FDA-Public Use
  Company Number: US-BAYER-2014-016171

PATIENT
  Age: 56 Year
  Sex: Female
  Weight: 54 kg

DRUGS (4)
  1. BETASERON [Suspect]
     Indication: MULTIPLE SCLEROSIS
     Dosage: 0.25 MG, QOD
     Route: 058
  2. FISH OIL [Concomitant]
  3. VITAMIN D [Concomitant]
     Dosage: 1000 U, UNK
  4. TYLENOL [PARACETAMOL] [Concomitant]
     Dosage: 500 MG, UNK

REACTIONS (1)
  - Pain in extremity [Unknown]
